FAERS Safety Report 6627787-1 (Version None)
Quarter: 2010Q1

REPORT INFORMATION
  Report Type: 
  Country: None (occurrence: None)
  Receive Date: 20100311
  Receipt Date: 20100303
  Transmission Date: 20100710
  Serious: Yes (Other)
  Sender: FDA-Public Use
  Company Number: FR-ASTRAZENECA-2010SE09660

PATIENT
  Age: 19910 Day
  Sex: Female

DRUGS (3)
  1. NEXIUM [Suspect]
     Indication: GASTRITIS EROSIVE
     Route: 042
     Dates: start: 20100107, end: 20100109
  2. LOVENOX [Suspect]
     Route: 058
     Dates: start: 20100107, end: 20100109
  3. ADVIL LIQUI-GELS [Concomitant]
     Route: 048
     Dates: start: 20091201, end: 20100109

REACTIONS (4)
  - DERMATITIS BULLOUS [None]
  - ECZEMA [None]
  - PRURITUS [None]
  - RASH MACULAR [None]
